FAERS Safety Report 7014007-1 (Version None)
Quarter: 2010Q3

REPORT INFORMATION
  Report Type: 
  Country: None (occurrence: None)
  Receive Date: 20100927
  Receipt Date: 20100915
  Transmission Date: 20110219
  Serious: Yes (Death, Hospitalization)
  Sender: FDA-Public Use
  Company Number: DE-BIOGENIDEC-2010BI015403

PATIENT
  Age: 36 Year
  Sex: Female

DRUGS (6)
  1. TYSABRI [Suspect]
     Indication: NEUROMYELITIS OPTICA
     Route: 042
     Dates: start: 20090301, end: 20090601
  2. TEGRETOL [Concomitant]
     Indication: CONVULSION
     Route: 048
  3. QUETIAPIN [Concomitant]
     Indication: PSYCHOTIC DISORDER
     Route: 048
  4. MIRTAZAPIN [Concomitant]
     Indication: SLEEP DISORDER
     Route: 048
  5. DURAGESIC-100 [Concomitant]
     Indication: PAIN
  6. NEXIUM [Concomitant]
     Indication: PROPHYLAXIS
     Route: 048

REACTIONS (2)
  - NEUROMYELITIS OPTICA [None]
  - PNEUMONIA [None]
